FAERS Safety Report 24013717 (Version 1)
Quarter: 2024Q2

REPORT INFORMATION
  Report Type: Spontaneous
  Country: CA (occurrence: CA)
  Receive Date: 20240626
  Receipt Date: 20240626
  Transmission Date: 20240716
  Serious: Yes (Other)
  Sender: FDA-Public Use
  Company Number: CA-SANDOZ-SDZ2024CA060382

PATIENT
  Age: 35 Year
  Sex: Male

DRUGS (16)
  1. CLONAZEPAM [Suspect]
     Active Substance: CLONAZEPAM
     Indication: Dystonia
     Dosage: UNK
     Route: 065
  2. CLONAZEPAM [Suspect]
     Active Substance: CLONAZEPAM
     Indication: Poor quality sleep
     Dosage: UNK
     Route: 065
  3. CLONAZEPAM [Suspect]
     Active Substance: CLONAZEPAM
     Dosage: UNK
     Route: 065
  4. CLONAZEPAM [Suspect]
     Active Substance: CLONAZEPAM
     Dosage: UNK
     Route: 065
  5. LEVOMEPROMAZINE MALEATE [Suspect]
     Active Substance: LEVOMEPROMAZINE MALEATE
     Indication: Poor quality sleep
     Dosage: UNK
     Route: 065
  6. LEVOMEPROMAZINE MALEATE [Suspect]
     Active Substance: LEVOMEPROMAZINE MALEATE
     Dosage: UNK
     Route: 065
  7. OXAZEPAM [Suspect]
     Active Substance: OXAZEPAM
     Indication: Poor quality sleep
     Dosage: UNK
     Route: 065
  8. OXAZEPAM [Suspect]
     Active Substance: OXAZEPAM
     Dosage: UNK
     Route: 065
  9. QUETIAPINE FUMARATE [Suspect]
     Active Substance: QUETIAPINE FUMARATE
     Indication: Poor quality sleep
     Dosage: UNK
     Route: 065
  10. TEMAZEPAM [Suspect]
     Active Substance: TEMAZEPAM
     Indication: Poor quality sleep
     Dosage: UNK
     Route: 065
  11. TEMAZEPAM [Suspect]
     Active Substance: TEMAZEPAM
     Dosage: UNK
     Route: 065
  12. TEMAZEPAM [Suspect]
     Active Substance: TEMAZEPAM
     Dosage: UNK
     Route: 065
  13. TEMAZEPAM [Suspect]
     Active Substance: TEMAZEPAM
     Indication: Poor quality sleep
     Dosage: UNK
     Route: 065
  14. ZOPICLONE [Suspect]
     Active Substance: ZOPICLONE
     Indication: Poor quality sleep
     Dosage: UNK
     Route: 064
  15. ZOPICLONE [Suspect]
     Active Substance: ZOPICLONE
     Dosage: UNK
     Route: 064
  16. LORAZEPAM [Concomitant]
     Active Substance: LORAZEPAM
     Indication: Product used for unknown indication
     Dosage: UNK
     Route: 065

REACTIONS (6)
  - Drug interaction [Unknown]
  - Dystonic tremor [Unknown]
  - Therapeutic product effect incomplete [Unknown]
  - Dystonia [Unknown]
  - Restlessness [Unknown]
  - Drug ineffective [Unknown]
